FAERS Safety Report 5563881-4 (Version None)
Quarter: 2007Q4

REPORT INFORMATION
  Report Type: 
  Country: None (occurrence: None)
  Receive Date: 20071217
  Receipt Date: 20071127
  Transmission Date: 20080405
  Serious: Yes (Hospitalization)
  Sender: FDA-Public Use
  Company Number: US-ASTRAZENECA-2007UW23114

PATIENT
  Age: 43 Year
  Sex: Male
  Weight: 104.1 kg

DRUGS (4)
  1. CRESTOR [Suspect]
     Indication: LIPIDS INCREASED
     Route: 048
     Dates: start: 20070906, end: 20071001
  2. BENICAR [Concomitant]
     Indication: HYPERTENSION
  3. PROVENTIL [Concomitant]
     Indication: ASTHMA
  4. TOPROL-XL [Concomitant]

REACTIONS (5)
  - BLOOD CREATINE PHOSPHOKINASE INCREASED [None]
  - CHEST PAIN [None]
  - DYSPNOEA [None]
  - RENAL FAILURE ACUTE [None]
  - RHABDOMYOLYSIS [None]
